FAERS Safety Report 7420378-4 (Version None)
Quarter: 2011Q2

REPORT INFORMATION
  Report Type: 
  Country: None (occurrence: None)
  Receive Date: 20110418
  Receipt Date: 20110413
  Transmission Date: 20111010
  Serious: Yes (Death)
  Sender: FDA-Public Use
  Company Number: PHHY2011JP31409

PATIENT
  Age: 35 Year
  Sex: Male

DRUGS (1)
  1. TEGRETOL [Suspect]
     Indication: ADJUSTMENT DISORDER

REACTIONS (1)
  - TOXICITY TO VARIOUS AGENTS [None]
